FAERS Safety Report 15321585 (Version 3)
Quarter: 2018Q4

REPORT INFORMATION
  Report Type: Spontaneous
  Country: CN (occurrence: CN)
  Receive Date: 20180827
  Receipt Date: 20181010
  Transmission Date: 20190204
  Serious: Yes (Hospitalization, Other)
  Sender: FDA-Public Use
  Company Number: CN-GLAXOSMITHKLINE-CN2018GSK152146

PATIENT
  Age: 81 Year
  Sex: Male
  Weight: 53 kg

DRUGS (3)
  1. VENTOLIN HFA [Suspect]
     Active Substance: ALBUTEROL SULFATE
     Indication: CHRONIC OBSTRUCTIVE PULMONARY DISEASE
     Dosage: 2 PUFF(S), TID
     Route: 055
  2. IPRATROPIUM BROMIDE SOLUTION FOR INHALATION [Suspect]
     Active Substance: IPRATROPIUM BROMIDE
     Indication: CHRONIC OBSTRUCTIVE PULMONARY DISEASE
     Dosage: UNK UNK, BID
  3. BUDESONIDE AND FORMOTEROL [Suspect]
     Active Substance: BUDESONIDE\FORMOTEROL
     Indication: CHRONIC OBSTRUCTIVE PULMONARY DISEASE
     Dosage: UNK UNK, BID

REACTIONS (7)
  - Bladder cancer [Unknown]
  - Marasmus [Recovered/Resolved]
  - Disease complication [Recovered/Resolved]
  - Diarrhoea [Recovered/Resolved]
  - Neuralgia [Unknown]
  - Blood urine present [Recovered/Resolved]
  - Herpes zoster [Recovered/Resolved with Sequelae]
